FAERS Safety Report 9468653 (Version 2)
Quarter: 2013Q3

REPORT INFORMATION
  Report Type: Report from Study
  Country: RU (occurrence: RU)
  Receive Date: 20130821
  Receipt Date: 20130906
  Transmission Date: 20140515
  Serious: Yes (Other)
  Sender: FDA-Public Use
  Company Number: RU-BRISTOL-MYERS SQUIBB COMPANY-19183425

PATIENT
  Age: 52 Year
  Sex: Male

DRUGS (4)
  1. SPRYCEL [Suspect]
     Indication: CHRONIC MYELOID LEUKAEMIA
     Route: 048
     Dates: start: 20120726
  2. ANGIOVIST [Concomitant]
  3. HYDROXYCARBAMIDE [Concomitant]
  4. INTERFERON ALFA-2A [Concomitant]

REACTIONS (10)
  - Pulmonary hypertension [Unknown]
  - Hypertension [Unknown]
  - Cardiomyopathy [Unknown]
  - Angina pectoris [Recovered/Resolved]
  - Pleural effusion [Unknown]
  - Pleurisy [Recovered/Resolved]
  - Muscle spasms [Unknown]
  - Headache [Unknown]
  - Oedema [Unknown]
  - Leukocytosis [Unknown]
